FAERS Safety Report 15691071 (Version 1)
Quarter: 2018Q4

REPORT INFORMATION
  Report Type: Spontaneous
  Country: SE (occurrence: SE)
  Receive Date: 20181205
  Receipt Date: 20181205
  Transmission Date: 20190205
  Serious: Yes (Other)
  Sender: FDA-Public Use
  Company Number: SE-SHIRE-SE201846270

PATIENT

DRUGS (2)
  1. KIOVIG [Suspect]
     Active Substance: HUMAN IMMUNOGLOBULIN G
     Indication: RHESUS INCOMPATIBILITY
     Dosage: UNK
     Route: 042
  2. KIOVIG [Suspect]
     Active Substance: HUMAN IMMUNOGLOBULIN G
     Indication: OFF LABEL USE

REACTIONS (4)
  - Hydrops foetalis [Unknown]
  - Exposure during pregnancy [Unknown]
  - Abortion spontaneous [Unknown]
  - Product use in unapproved indication [Unknown]
